FAERS Safety Report 7798488-1 (Version None)
Quarter: 2011Q4

REPORT INFORMATION
  Report Type: 
  Country: None (occurrence: None)
  Receive Date: 20111005
  Receipt Date: 20110930
  Transmission Date: 20120403
  Serious: No
  Sender: FDA-Public Use
  Company Number: US-PFIZER INC-2011234206

PATIENT
  Sex: Female

DRUGS (1)
  1. ZOLOFT [Suspect]
     Dosage: 25 MG, UNK
     Dates: start: 20110101

REACTIONS (6)
  - FEAR [None]
  - DRUG INEFFECTIVE [None]
  - FATIGUE [None]
  - TREMOR [None]
  - ASTHENIA [None]
  - SOMNOLENCE [None]
